FAERS Safety Report 9504047 (Version 2)
Quarter: 2013Q3

REPORT INFORMATION
  Report Type: Report from Study
  Country: US (occurrence: US)
  Receive Date: 20130906
  Receipt Date: 20130910
  Transmission Date: 20140515
  Serious: Yes (Hospitalization)
  Sender: FDA-Public Use
  Company Number: US-PFIZER INC-2013249720

PATIENT
  Age: 53 Year
  Sex: Female
  Weight: 72 kg

DRUGS (10)
  1. AXITINIB [Suspect]
     Dosage: 2 MG, 2X/DAY
     Dates: start: 20111025, end: 20130819
  2. TEMSIROLIMUS [Suspect]
     Dosage: 20 MG, WEEKLY
     Dates: start: 20111025, end: 20130819
  3. ACETAMINOPHEN [Concomitant]
     Indication: LIGAMENT SPRAIN
     Dosage: 500 MG, UNK
     Route: 048
     Dates: start: 20111104
  4. PROCHLORPERAZINE [Concomitant]
     Indication: PROPHYLAXIS OF NAUSEA AND VOMITING
     Dosage: 10 MG, UNK
     Route: 048
     Dates: start: 20111028
  5. CLOTRIMAZOLE [Concomitant]
     Indication: RASH
     Dosage: UNK
     Route: 061
     Dates: start: 20130410
  6. AMBIEN [Concomitant]
     Indication: INSOMNIA
     Dosage: 10 MG, UNK
     Route: 048
     Dates: start: 20050101
  7. SYNTHROID [Concomitant]
     Indication: HYPOTHYROIDISM
     Dosage: 50 UG, UNK
     Route: 048
     Dates: start: 20080701
  8. CLARITIN [Concomitant]
     Indication: HYPERSENSITIVITY
     Dosage: 1 TAB, UNK
     Route: 048
     Dates: start: 20060101
  9. LORAZEPAM [Concomitant]
     Indication: ANXIETY
     Dosage: 1 MG, UNK
     Route: 048
     Dates: start: 20111025
  10. LOPID [Concomitant]
     Indication: HYPERCHOLESTEROLAEMIA
     Dosage: 600 MG, UNK
     Route: 048
     Dates: start: 20111101

REACTIONS (1)
  - Cellulitis [Not Recovered/Not Resolved]
